FAERS Safety Report 4428902-0 (Version None)
Quarter: 2004Q3

REPORT INFORMATION
  Report Type: 
  Country: None (occurrence: None)
  Receive Date: 20040816
  Receipt Date: 20040730
  Transmission Date: 20050211
  Serious: Yes (Hospitalization)
  Sender: FDA-Public Use
  Company Number: 04P-163-0269121

PATIENT
  Age: 57 Year
  Sex: Male
  Weight: 69 kg

DRUGS (12)
  1. KALETRA [Suspect]
     Indication: HIV INFECTION
     Dosage: PER ORAL
     Route: 048
     Dates: start: 20030814
  2. EMTRICITABINE [Concomitant]
  3. BACTRIM [Concomitant]
  4. WARFARIN SODIUM [Concomitant]
  5. PRAVASTATIN SODIUM [Concomitant]
  6. METOPROLOL SUCCINATE [Concomitant]
  7. TENOFOVIR [Concomitant]
  8. GABAPENTIN [Concomitant]
  9. NITROGLYCERIN [Concomitant]
  10. ESOMEPRAZOLE [Concomitant]
  11. LOPERAMIDE HYDROCHLORIDE [Concomitant]
  12. FLUCONAZOLE [Concomitant]

REACTIONS (14)
  - ACTIVATED PARTIAL THROMBOPLASTIN TIME PROLONGED [None]
  - BODY TEMPERATURE DECREASED [None]
  - CARDIAC DISORDER [None]
  - CHEST PAIN [None]
  - GASTROOESOPHAGEAL REFLUX DISEASE [None]
  - HICCUPS [None]
  - INTERNATIONAL NORMALISED RATIO INCREASED [None]
  - MELAENA [None]
  - NAUSEA [None]
  - OESOPHAGEAL HAEMORRHAGE [None]
  - PROTHROMBIN TIME PROLONGED [None]
  - REFUSAL OF TREATMENT BY PATIENT [None]
  - RESPIRATORY RATE INCREASED [None]
  - VENTRICULAR HYPERTROPHY [None]
